FAERS Safety Report 12124795 (Version 1)
Quarter: 2016Q1

REPORT INFORMATION
  Report Type: Spontaneous
  Country: IN (occurrence: IN)
  Receive Date: 20160229
  Receipt Date: 20160229
  Transmission Date: 20160526
  Serious: Yes (Death, Hospitalization)
  Sender: FDA-Public Use
  Company Number: IN-PFIZER INC-2015382871

PATIENT
  Age: 40 Year
  Sex: Female

DRUGS (1)
  1. SUTENT [Suspect]
     Active Substance: SUNITINIB MALATE
     Indication: METASTATIC RENAL CELL CARCINOMA
     Dosage: 50 MG, ONCE A DAY
     Route: 048
     Dates: start: 20151015

REACTIONS (9)
  - Oral mucosal blistering [Recovered/Resolved]
  - Musculoskeletal pain [Recovered/Resolved]
  - Disease progression [Unknown]
  - Asthenia [Recovering/Resolving]
  - Neoplasm [Unknown]
  - Hypotension [Unknown]
  - Death [Fatal]
  - Abdominal pain upper [Unknown]
  - Dehydration [Unknown]

NARRATIVE: CASE EVENT DATE: 201510
